FAERS Safety Report 9097054 (Version 1)
Quarter: 2013Q1

REPORT INFORMATION
  Report Type: Spontaneous
  Country: CA (occurrence: None)
  Receive Date: 20130123
  Receipt Date: 20130123
  Transmission Date: 20140127
  Serious: Yes (Other)
  Sender: FDA-Public Use
  Company Number: 2013P1000464

PATIENT
  Sex: Female

DRUGS (1)
  1. HEPARIN [Suspect]
     Indication: ANTICOAGULANT THERAPY
     Route: 042

REACTIONS (5)
  - Heparin-induced thrombocytopenia [None]
  - Thrombosis in device [None]
  - Device occlusion [None]
  - Cerebral infarction [None]
  - Hemiparesis [None]
